FAERS Safety Report 6360874-4 (Version None)
Quarter: 2009Q3

REPORT INFORMATION
  Report Type: 
  Country: None (occurrence: None)
  Receive Date: 20090915
  Receipt Date: 20090915
  Transmission Date: 20100115
  Serious: Yes (Other)
  Sender: FDA-Public Use
  Company Number: None

PATIENT
  Age: 42 Year
  Sex: Female
  Weight: 50.8029 kg

DRUGS (2)
  1. TOPIRANATE [Suspect]
     Indication: MIGRAINE
     Dosage: 100 MG QD
     Dates: start: 20090804, end: 20090810
  2. XANAX [Concomitant]

REACTIONS (2)
  - ABDOMINAL DISCOMFORT [None]
  - MOOD SWINGS [None]
